FAERS Safety Report 20119622 (Version 2)
Quarter: 2022Q2

REPORT INFORMATION
  Report Type: Spontaneous
  Country: US (occurrence: US)
  Receive Date: 20211126
  Receipt Date: 20220507
  Transmission Date: 20220721
  Serious: Yes (Death, Other)
  Sender: FDA-Public Use
  Company Number: US-AMGEN-USASP2021187146

PATIENT

DRUGS (2)
  1. BLINATUMOMAB [Suspect]
     Active Substance: BLINATUMOMAB
     Indication: B precursor type acute leukaemia
     Dosage: UNK
     Route: 065
  2. INOTUZUMAB OZOGAMICIN [Concomitant]
     Active Substance: INOTUZUMAB OZOGAMICIN

REACTIONS (8)
  - B precursor type acute leukaemia [Fatal]
  - Death [Fatal]
  - Cerebral haemorrhage [Fatal]
  - Lineage switch leukaemia [Unknown]
  - Neurotoxicity [Fatal]
  - Cytokine release syndrome [Fatal]
  - Therapy non-responder [Unknown]
  - Therapeutic product effect incomplete [Unknown]
